FAERS Safety Report 5699584-5 (Version None)
Quarter: 2008Q2

REPORT INFORMATION
  Report Type: 
  Country: None (occurrence: None)
  Receive Date: 20080410
  Receipt Date: 20080401
  Transmission Date: 20081010
  Serious: Yes (Other)
  Sender: FDA-Public Use
  Company Number: GB-TEVA-169643ISR

PATIENT
  Age: 39 Year
  Sex: Female

DRUGS (3)
  1. BACLOFEN [Suspect]
  2. CARBAMAZEPINE [Suspect]
  3. STEROIDS [Suspect]

REACTIONS (10)
  - ARTHRALGIA [None]
  - BLOOD CULTURE POSITIVE [None]
  - DRUG INEFFECTIVE [None]
  - ENDOCARDITIS BACTERIAL [None]
  - FATIGUE [None]
  - NIGHT SWEATS [None]
  - RED BLOOD CELL SEDIMENTATION RATE ABNORMAL [None]
  - RHEUMATOID FACTOR POSITIVE [None]
  - STREPTOCOCCAL BACTERAEMIA [None]
  - TREMOR [None]
